FAERS Safety Report 5814325-6 (Version None)
Quarter: 2008Q3

REPORT INFORMATION
  Report Type: 
  Country: None (occurrence: None)
  Receive Date: 20080715
  Receipt Date: 20080630
  Transmission Date: 20090109
  Serious: Yes (Life-Threatening, Disabling, Other)
  Sender: FDA-Public Use
  Company Number: 2008S1011789

PATIENT
  Age: 84 Year
  Sex: Female
  Weight: 108.8633 kg

DRUGS (9)
  1. DILTIAZEM HYDROCHLORIDE [Suspect]
     Indication: ATRIAL FIBRILLATION
     Dosage: 120 MG; TWICE A DAY; ORAL
     Route: 048
     Dates: start: 20060831, end: 20071216
  2. DILTIAZEM HYDROCHLORIDE [Suspect]
     Indication: ATRIAL FIBRILLATION
     Dosage: ONCE; ORAL
     Route: 048
     Dates: start: 20071217, end: 20071217
  3. TAURINE [Concomitant]
  4. WARFARIN SODIUM [Concomitant]
  5. VIT B COMPLEX [Concomitant]
  6. VIT C [Concomitant]
  7. VITAMIN E [Concomitant]
  8. MSM WITH GLUCOSAMINE /05460301/ [Concomitant]
  9. CHONDROITIN [Concomitant]

REACTIONS (24)
  - ABASIA [None]
  - ABDOMINAL DISTENSION [None]
  - ARTHRALGIA [None]
  - ARTHRITIS [None]
  - ASTHENIA [None]
  - BACK PAIN [None]
  - BALANCE DISORDER [None]
  - CARDIAC ARREST [None]
  - CARDIAC FAILURE CONGESTIVE [None]
  - DECREASED ACTIVITY [None]
  - DRUG INEFFECTIVE [None]
  - DYSSTASIA [None]
  - FLATULENCE [None]
  - HEADACHE [None]
  - INCONTINENCE [None]
  - MUSCULAR WEAKNESS [None]
  - MYOCARDIAL INFARCTION [None]
  - OEDEMA PERIPHERAL [None]
  - PAIN IN EXTREMITY [None]
  - PHARMACEUTICAL PRODUCT COMPLAINT [None]
  - REFUSAL OF TREATMENT BY PATIENT [None]
  - THIRST [None]
  - TREMOR [None]
  - VISION BLURRED [None]
